FAERS Safety Report 7366801-5 (Version None)
Quarter: 2011Q1

REPORT INFORMATION
  Report Type: 
  Country: None (occurrence: None)
  Receive Date: 20110322
  Receipt Date: 20110317
  Transmission Date: 20110831
  Serious: Yes (Hospitalization)
  Sender: FDA-Public Use
  Company Number: B0695655A

PATIENT
  Age: 38 Year
  Sex: Male
  Weight: 130 kg

DRUGS (2)
  1. ORLISTAT [Suspect]
     Route: 048
  2. LIRAGLUTIDE [Suspect]
     Dosage: 1.2MG PER DAY
     Route: 058
     Dates: start: 20110102

REACTIONS (2)
  - VOMITING [None]
  - ABDOMINAL PAIN [None]
